FAERS Safety Report 7876744-6 (Version None)
Quarter: 2011Q4

REPORT INFORMATION
  Report Type: 
  Country: None (occurrence: None)
  Receive Date: 20111031
  Receipt Date: 20111018
  Transmission Date: 20120403
  Serious: Yes (Death, Other)
  Sender: FDA-Public Use
  Company Number: JP-ROCHE-1002496

PATIENT
  Sex: Male
  Weight: 32 kg

DRUGS (3)
  1. ACTEMRA [Suspect]
     Indication: RHEUMATOID ARTHRITIS
     Route: 041
     Dates: start: 20100709, end: 20110624
  2. AZULFIDINE [Concomitant]
     Route: 048
     Dates: start: 20100301
  3. AZULFIDINE [Concomitant]
     Indication: RHEUMATOID ARTHRITIS
     Dosage: DOSAGE IS UNCERTAIN.
     Route: 048
     Dates: start: 20040401, end: 20070201

REACTIONS (4)
  - PNEUMONIA ASPIRATION [None]
  - CERVICAL VERTEBRAL FRACTURE [None]
  - CHRONIC OBSTRUCTIVE PULMONARY DISEASE [None]
  - PNEUMONIA BACTERIAL [None]
